FAERS Safety Report 7798939-2 (Version None)
Quarter: 2011Q4

REPORT INFORMATION
  Report Type: 
  Country: None (occurrence: None)
  Receive Date: 20111005
  Receipt Date: 20111005
  Transmission Date: 20120403
  Serious: No
  Sender: FDA-Public Use
  Company Number: None

PATIENT
  Sex: Female
  Weight: 84.7 kg

DRUGS (4)
  1. DEXAMETHASONE [Suspect]
     Dosage: 12 MG
     Dates: end: 20110815
  2. DOXORUBICIN HCL [Suspect]
     Dosage: 128 MG
     Dates: end: 20110815
  3. CARBOPLATIN [Suspect]
     Dosage: 0 MG
     Dates: end: 20110613
  4. CYCLOSPORINE [Suspect]
     Dosage: 1280 MG
     Dates: end: 20110815

REACTIONS (1)
  - WEIGHT DECREASED [None]
